FAERS Safety Report 4345601-4 (Version None)
Quarter: 2004Q2

REPORT INFORMATION
  Report Type: 
  Country: None (occurrence: None)
  Receive Date: 20040421
  Receipt Date: 20040409
  Transmission Date: 20050107
  Serious: Yes (Hospitalization)
  Sender: FDA-Public Use
  Company Number: 163-20785-04030527

PATIENT
  Age: 85 Year
  Sex: Female

DRUGS (7)
  1. THALOMID [Suspect]
     Indication: MYELODYSPLASTIC SYNDROME
     Dosage: 50 MG, DAILY,ORAL
     Route: 048
     Dates: start: 20031003, end: 20031102
  2. THALOMID [Suspect]
     Indication: MYELOFIBROSIS
     Dosage: 50 MG, DAILY,ORAL
     Route: 048
     Dates: start: 20031003, end: 20031102
  3. LOPRESSOR [Concomitant]
  4. COUMADIN [Concomitant]
  5. HYDROCHLOROTHIAZIDE [Concomitant]
  6. PROCRIT (ERYTHROPOIETIN) [Concomitant]
  7. MULTI-VITAMINS [Concomitant]

REACTIONS (1)
  - GUILLAIN-BARRE SYNDROME [None]
